FAERS Safety Report 9020225 (Version 1)
Quarter: 2013Q1

REPORT INFORMATION
  Report Type: Spontaneous
  Country: US (occurrence: US)
  Receive Date: 20130119
  Receipt Date: 20130119
  Transmission Date: 20140127
  Serious: No
  Sender: FDA-Public Use
  Company Number: US-ALLERGAN-1209764US

PATIENT
  Age: 42 Year
  Sex: Male

DRUGS (2)
  1. BOTOX COSMETIC [Suspect]
     Indication: SKIN WRINKLING
     Dosage: UNK
     Route: 030
     Dates: start: 2010, end: 2010
  2. BOTOX COSMETIC [Suspect]
     Indication: SKIN WRINKLING

REACTIONS (5)
  - Lip swelling [Unknown]
  - Lip exfoliation [Unknown]
  - Dry mouth [Unknown]
  - Musculoskeletal pain [Unknown]
  - Headache [Unknown]
